FAERS Safety Report 5721362-9 (Version None)
Quarter: 2008Q2

REPORT INFORMATION
  Report Type: 
  Country: None (occurrence: None)
  Receive Date: 20080429
  Receipt Date: 20080421
  Transmission Date: 20081010
  Serious: Yes (Hospitalization)
  Sender: FDA-Public Use
  Company Number: BE-WYE-G01445908

PATIENT
  Sex: Female

DRUGS (1)
  1. EFFEXOR [Suspect]
     Indication: DEPRESSION
     Route: 048

REACTIONS (1)
  - DRUG EXPOSURE DURING PREGNANCY [None]
